FAERS Safety Report 5893040-7 (Version None)
Quarter: 2008Q3

REPORT INFORMATION
  Report Type: 
  Country: None (occurrence: None)
  Receive Date: 20080919
  Receipt Date: 20080904
  Transmission Date: 20090109
  Serious: Yes (Other)
  Sender: FDA-Public Use
  Company Number: 2008S1016204

PATIENT
  Age: 61 Year
  Sex: Female

DRUGS (4)
  1. FELODIPINE [Suspect]
     Indication: HYPERTENSION
     Dosage: 10 MG ORAL
     Route: 048
     Dates: start: 20080212, end: 20080401
  2. BISOPROLOL [Concomitant]
  3. ESTROGENIC SUBSTANCE [Concomitant]
  4. PROVERA [Concomitant]

REACTIONS (3)
  - ALCOHOL INTERACTION [None]
  - CAPILLARY DISORDER [None]
  - SUNBURN [None]
